FAERS Safety Report 9172735 (Version 1)
Quarter: 2012Q4

REPORT INFORMATION
  Report Type: 
  Country: FR (occurrence: FR)
  Receive Date: 20120911
  Receipt Date: 20120911
  Transmission Date: 20130627
  Serious: Yes (Other)
  Sender: FDA-Public Use
  Company Number: PHHY2012FR078708

PATIENT
  Age: 62 Year
  Sex: Female

DRUGS (2)
  1. AMOXICILLIN SANDOZ [Suspect]
     Indication: LYME DISEASE
     Dosage: 1 g, TID
     Route: 048
     Dates: start: 2012
  2. IXPRIM [Concomitant]
     Dosage: UNK

REACTIONS (1)
  - Serum ferritin increased [Not Recovered/Not Resolved]
